FAERS Safety Report 4540043-0 (Version None)
Quarter: 2004Q4

REPORT INFORMATION
  Report Type: 
  Country: None (occurrence: None)
  Receive Date: 20041223
  Receipt Date: 20041216
  Transmission Date: 20050328
  Serious: Yes (Hospitalization)
  Sender: FDA-Public Use
  Company Number: 2004114011

PATIENT
  Age: 78 Year
  Sex: Female

DRUGS (1)
  1. SUDAFED 12 HOUR [Suspect]
     Dosage: 1 TABLET QD HS, ORAL
     Route: 048
     Dates: start: 20041101, end: 20041206

REACTIONS (3)
  - BLOOD PRESSURE INCREASED [None]
  - DIZZINESS [None]
  - HEART RATE INCREASED [None]
